FAERS Safety Report 23201974 (Version 1)
Quarter: 2023Q4

REPORT INFORMATION
  Report Type: Spontaneous
  Country: US (occurrence: US)
  Receive Date: 20231120
  Receipt Date: 20231120
  Transmission Date: 20240109
  Serious: Yes (Death, Other)
  Sender: FDA-Public Use
  Company Number: US-ENDO-CASE-0043973

PATIENT
  Sex: Male

DRUGS (10)
  1. PERCOCET [Suspect]
     Active Substance: ACETAMINOPHEN\OXYCODONE HYDROCHLORIDE
  2. OPANA ER [Suspect]
     Active Substance: OXYMORPHONE HYDROCHLORIDE
  3. METHADONE [Suspect]
     Active Substance: METHADONE HYDROCHLORIDE
  4. VICODIN [Suspect]
     Active Substance: ACETAMINOPHEN\HYDROCODONE BITARTRATE
  5. MORPHINE [Suspect]
     Active Substance: MORPHINE
  6. OPANA [Suspect]
     Active Substance: OXYMORPHONE HYDROCHLORIDE
  7. OXYMORPHONE [Suspect]
     Active Substance: OXYMORPHONE
  8. XANAX [Suspect]
     Active Substance: ALPRAZOLAM
  9. FENTANYL CITRATE [Suspect]
     Active Substance: FENTANYL CITRATE
  10. DEPODUR [Suspect]
     Active Substance: MORPHINE SULFATE

REACTIONS (2)
  - Death [Fatal]
  - Dependence [Unknown]
